FAERS Safety Report 20946141 (Version 1)
Quarter: 2022Q2

REPORT INFORMATION
  Report Type: Spontaneous
  Country: US (occurrence: None)
  Receive Date: 20220609
  Receipt Date: 20220609
  Transmission Date: 20220721
  Serious: Yes (Hospitalization)
  Sender: FDA-Public Use
  Company Number: None

PATIENT
  Age: 76 Year
  Sex: Male

DRUGS (1)
  1. ABIRATERONE [Suspect]
     Active Substance: ABIRATERONE
     Dosage: 250 MG DAILY ORAL?
     Route: 048
     Dates: start: 202204

REACTIONS (2)
  - Fatigue [None]
  - Pneumonia [None]

NARRATIVE: CASE EVENT DATE: 20220609
